FAERS Safety Report 4888406-8 (Version None)
Quarter: 2006Q1

REPORT INFORMATION
  Report Type: 
  Country: None (occurrence: None)
  Receive Date: 20060119
  Receipt Date: 20060119
  Transmission Date: 20060701
  Serious: Yes (Hospitalization)
  Sender: FDA-Public Use
  Company Number: None

PATIENT
  Age: 46 Year
  Sex: Male
  Weight: 137.8935 kg

DRUGS (2)
  1. IBUPROFEN [Suspect]
     Indication: SHOULDER PAIN
     Dosage: 1600 MG PO (ONCE)
     Route: 048
     Dates: start: 20051019
  2. FUROSEMIDE [Suspect]
     Dosage: 40MG PO BID
     Route: 048
     Dates: start: 20050628, end: 20051020

REACTIONS (3)
  - HYPOVOLAEMIA [None]
  - POLYURIA [None]
  - RENAL FAILURE ACUTE [None]
